FAERS Safety Report 5629739-7 (Version None)
Quarter: 2008Q1

REPORT INFORMATION
  Report Type: 
  Country: None (occurrence: None)
  Receive Date: 20080218
  Receipt Date: 20080213
  Transmission Date: 20080703
  Serious: Yes (Death)
  Sender: FDA-Public Use
  Company Number: ES-ASTRAZENECA-2008AC00446

PATIENT
  Age: 36 Year
  Sex: Female

DRUGS (13)
  1. MERONEM [Suspect]
     Route: 048
     Dates: start: 20061122
  2. SUMIAL [Suspect]
     Route: 048
     Dates: start: 20061125
  3. ALBUMIN (HUMAN) [Suspect]
     Dates: start: 20061129
  4. SEPTRIN FORTE [Suspect]
     Dates: start: 20061117
  5. DIFLUCAN [Suspect]
     Route: 042
     Dates: start: 20061104
  6. ACFOL [Suspect]
     Dates: start: 20061117
  7. TARGOCID [Suspect]
     Dates: start: 20061125
  8. ZANTAC [Suspect]
     Route: 042
     Dates: start: 20061115, end: 20061205
  9. GANCICLOVIR [Suspect]
     Dates: start: 20061124, end: 20061204
  10. MORPHINE HCL ELIXIR [Suspect]
     Dates: start: 20061129
  11. ALEMTUZUMAB [Suspect]
     Indication: T-CELL LYMPHOMA
     Route: 042
     Dates: start: 20061110, end: 20061204
  12. LORAZEPAM [Suspect]
     Route: 048
     Dates: start: 20061109
  13. MIDAZOLAM HCL [Suspect]
     Dates: start: 20061129

REACTIONS (1)
  - HEPATIC FAILURE [None]
